FAERS Safety Report 9941836 (Version 1)
Quarter: 2014Q1

REPORT INFORMATION
  Report Type: Report from Study
  Country: US (occurrence: US)
  Receive Date: 20140303
  Receipt Date: 20140303
  Transmission Date: 20141002
  Serious: No
  Sender: FDA-Public Use
  Company Number: US-ABBVIE-13P-163-1043604-00

PATIENT
  Age: 44 Year
  Sex: Female

DRUGS (6)
  1. HUMIRA [Suspect]
     Indication: COLITIS ULCERATIVE
     Dates: start: 20130122
  2. LIALDA [Concomitant]
     Indication: COLITIS ULCERATIVE
  3. AZASAN [Concomitant]
     Indication: COLITIS ULCERATIVE
  4. LIBRAX [Concomitant]
     Indication: GASTROINTESTINAL DISORDER
     Dosage: 1 TAB AT NIGHT
  5. ANGELIQ [Concomitant]
     Indication: PREMATURE MENOPAUSE
     Dosage: 1 TAB DAILY
  6. CELEXA [Concomitant]
     Indication: ANXIETY
     Dosage: AT NIGHT

REACTIONS (2)
  - Fatigue [Unknown]
  - Drug ineffective [Not Recovered/Not Resolved]
